FAERS Safety Report 18130569 (Version 2)
Quarter: 2020Q3

REPORT INFORMATION
  Report Type: Report from Study
  Country: CA (occurrence: CA)
  Receive Date: 20200810
  Receipt Date: 20200817
  Transmission Date: 20201103
  Serious: Yes (Hospitalization, Other)
  Sender: FDA-Public Use
  Company Number: CA-JNJFOC-20191118268

PATIENT
  Age: 54 Year
  Sex: Female
  Weight: 107.3 kg

DRUGS (3)
  1. STELARA [Suspect]
     Active Substance: USTEKINUMAB
     Indication: PSORIATIC ARTHROPATHY
     Route: 058
  2. STELARA [Suspect]
     Active Substance: USTEKINUMAB
     Indication: PSORIASIS
     Route: 058
     Dates: start: 20190917
  3. STELARA [Suspect]
     Active Substance: USTEKINUMAB
     Indication: CROHN^S DISEASE

REACTIONS (10)
  - Rheumatoid arthritis [Recovered/Resolved]
  - Postoperative wound infection [Recovered/Resolved]
  - Drug ineffective [Unknown]
  - Ovarian cyst [Unknown]
  - Off label use [Unknown]
  - Nephrolithiasis [Recovered/Resolved]
  - Inflammation [Unknown]
  - Product use issue [Unknown]
  - Crohn^s disease [Recovering/Resolving]
  - Pain [Not Recovered/Not Resolved]

NARRATIVE: CASE EVENT DATE: 20191022
